FAERS Safety Report 10363351 (Version 1)
Quarter: 2014Q1

REPORT INFORMATION
  Report Type: Spontaneous
  Country: US (occurrence: None)
  Receive Date: 20140306
  Receipt Date: 20140306
  Transmission Date: 20141002
  Serious: Yes (Hospitalization)
  Sender: FDA-Public Use
  Company Number: 163-21880-13020124

PATIENT
  Age: 71 Year
  Sex: Male
  Weight: 99.34 kg

DRUGS (11)
  1. REVLIMID [Suspect]
     Indication: PLASMA CELL MYELOMA
     Dosage: 21 IN 28 D,
     Route: 048
     Dates: start: 20120330, end: 20120622
  2. DEXAMETHASONE(DEXAMETHASONE) (UNKNOWN) [Concomitant]
  3. LIPITOR(ATORVASTATIN) (TABLETS) [Concomitant]
  4. PLAVIX(CLOPIDOGREL SULFATE) (TABLETS) [Concomitant]
  5. ASA(ACETYLSALICYLIC ACID)(TABLETS) [Concomitant]
  6. METOPROLOL(METOPROLOL) (TABLETS) [Concomitant]
  7. OMEGA 3(FISH OIL)(CAPSULES) [Concomitant]
  8. ACYCLOVIR(ACICLOVIR)(TABLETS) [Concomitant]
  9. MULTIVITAMINS(MULTIVITAMINS)(TABLETS) [Concomitant]
  10. CALCIUM(CALCIUM)(CAPSULES) [Concomitant]
  11. AREDIA(PAMIDRONATE DISODIUM)(INJECTION FOR INFUSION) [Concomitant]

REACTIONS (2)
  - Gastrooesophageal reflux disease [None]
  - Fatigue [None]
